FAERS Safety Report 5934220-1 (Version None)
Quarter: 2008Q4

REPORT INFORMATION
  Report Type: 
  Country: None (occurrence: None)
  Receive Date: 20081028
  Receipt Date: 20081028
  Transmission Date: 20090506
  Serious: Yes (Other)
  Sender: FDA-Public Use
  Company Number: None

PATIENT

DRUGS (3)
  1. MIDAZOLAM HCL [Suspect]
     Indication: AMNESIA
     Dosage: 5MG/5ML IV
     Route: 042
     Dates: start: 20081022, end: 20081027
  2. MIDAZOLAM HCL [Suspect]
     Indication: SEDATION
     Dosage: 5MG/5ML IV
     Route: 042
     Dates: start: 20081022, end: 20081027
  3. FENTANYL [Concomitant]

REACTIONS (3)
  - DRUG EFFECT DECREASED [None]
  - DRUG INEFFECTIVE [None]
  - PRODUCT QUALITY ISSUE [None]
